FAERS Safety Report 9655704 (Version 2)
Quarter: 2013Q4

REPORT INFORMATION
  Report Type: Spontaneous
  Country: US (occurrence: US)
  Receive Date: 20131030
  Receipt Date: 20131107
  Transmission Date: 20140711
  Serious: No
  Sender: FDA-Public Use
  Company Number: US-BIOGENIDEC-2013BI101480

PATIENT
  Sex: Male

DRUGS (1)
  1. TYSABRI [Suspect]
     Indication: MULTIPLE SCLEROSIS
     Route: 042
     Dates: start: 20120717, end: 20130909

REACTIONS (4)
  - Cataract [Not Recovered/Not Resolved]
  - Musculoskeletal disorder [Unknown]
  - Cataract operation [Unknown]
  - Multiple sclerosis relapse [Unknown]
